FAERS Safety Report 6604424-3 (Version None)
Quarter: 2010Q1

REPORT INFORMATION
  Report Type: 
  Country: None (occurrence: None)
  Receive Date: 20100226
  Receipt Date: 20090930
  Transmission Date: 20100710
  Serious: No
  Sender: FDA-Public Use
  Company Number: A0809754A

PATIENT
  Age: 49 Year
  Sex: Female

DRUGS (3)
  1. LAMICTAL CD [Suspect]
     Indication: BIPOLAR DISORDER
     Dosage: 75MG TWICE PER DAY
     Route: 048
     Dates: start: 20040101, end: 20090929
  2. THYROID SUPPLEMENT [Concomitant]
  3. MULTI-VITAMINS [Concomitant]

REACTIONS (5)
  - BLISTER [None]
  - PAIN [None]
  - PRURITUS [None]
  - RASH [None]
  - RASH MACULAR [None]
